FAERS Safety Report 10788818 (Version 1)
Quarter: 2015Q1

REPORT INFORMATION
  Report Type: Spontaneous
  Country: US (occurrence: US)
  Receive Date: 20150212
  Receipt Date: 20150212
  Transmission Date: 20150721
  Serious: No
  Sender: FDA-Public Use
  Company Number: US-BAYER-2015-014619

PATIENT
  Age: 62 Year
  Sex: Male

DRUGS (2)
  1. HUMIRA [Suspect]
     Active Substance: ADALIMUMAB
     Indication: CROHN^S DISEASE
     Dosage: 40 MG, Q2HR
     Route: 065
     Dates: start: 20140813
  2. CIPRO [Suspect]
     Active Substance: CIPROFLOXACIN HYDROCHLORIDE
     Dosage: UNK
     Dates: end: 201410

REACTIONS (6)
  - Rash pruritic [None]
  - Contusion [None]
  - Rash papular [None]
  - Rash pruritic [None]
  - Contusion [None]
  - Rash papular [None]

NARRATIVE: CASE EVENT DATE: 20141014
